FAERS Safety Report 4500136-0 (Version None)
Quarter: 2004Q4

REPORT INFORMATION
  Report Type: 
  Country: None (occurrence: None)
  Receive Date: 20041112
  Receipt Date: 20041026
  Transmission Date: 20050328
  Serious: Yes (Hospitalization)
  Sender: FDA-Public Use
  Company Number: IE-ROCHE-384357

PATIENT
  Age: 63 Year
  Sex: Male
  Weight: 91 kg

DRUGS (6)
  1. XENICAL [Suspect]
     Indication: OBESITY
     Route: 048
     Dates: start: 20040824, end: 20041102
  2. AMARYL [Concomitant]
     Route: 048
  3. AVANDIA [Concomitant]
     Route: 048
  4. PRAVASTATIN [Concomitant]
     Route: 048
  5. COVERSYL [Concomitant]
     Route: 048
  6. ASPIRIN [Concomitant]
     Dosage: DOSING REGIMEN WAS REPORTED AS ALTERNATE DAYS.
     Route: 048

REACTIONS (1)
  - CEREBROVASCULAR ACCIDENT [None]
